FAERS Safety Report 9200781 (Version 1)
Quarter: 2013Q1

REPORT INFORMATION
  Report Type: Spontaneous
  Country: US (occurrence: None)
  Receive Date: 20130328
  Receipt Date: 20130328
  Transmission Date: 20140127
  Serious: Yes (Other)
  Sender: FDA-Public Use
  Company Number: None

PATIENT
  Age: 51 Year
  Sex: Female
  Weight: 64.41 kg

DRUGS (1)
  1. CREST PRO-HEALTH CLINICAL RINSE [Suspect]
     Dosage: 4 TEASPONS TWICE DAILY PO
     Route: 048
     Dates: start: 20130204, end: 20130325

REACTIONS (4)
  - Toothache [None]
  - Oropharyngeal pain [None]
  - Dysphonia [None]
  - Aphasia [None]
